FAERS Safety Report 4644097-2 (Version None)
Quarter: 2005Q2

REPORT INFORMATION
  Report Type: 
  Country: None (occurrence: None)
  Receive Date: 20050425
  Receipt Date: 20050413
  Transmission Date: 20051028
  Serious: Yes (Hospitalization)
  Sender: FDA-Public Use
  Company Number: GB-JNJFOC-20041004765

PATIENT
  Sex: Male

DRUGS (15)
  1. REMICADE [Suspect]
     Route: 042
  2. REMICADE [Suspect]
     Indication: RHEUMATOID ARTHRITIS
     Route: 042
  3. METHOTREXATE [Concomitant]
  4. FOLIC ACID [Concomitant]
  5. SULFASALAZINE [Concomitant]
  6. PREDNISOLONE [Concomitant]
  7. DF 118 [Concomitant]
  8. CALCICHEW [Concomitant]
  9. ATENOLOL [Concomitant]
  10. FOSAMAX [Concomitant]
  11. RABEPRAZOLE SODIUM [Concomitant]
  12. IMDUR [Concomitant]
  13. ASPIRIN [Concomitant]
  14. GTN SPRAY [Concomitant]
  15. INDOMETHACIN [Concomitant]

REACTIONS (4)
  - ANGINA UNSTABLE [None]
  - ANXIETY [None]
  - CORONARY ARTERY SURGERY [None]
  - MYOCARDIAL INFARCTION [None]
